FAERS Safety Report 23011637 (Version 7)
Quarter: 2024Q1

REPORT INFORMATION
  Report Type: Spontaneous
  Country: US (occurrence: US)
  Receive Date: 20230929
  Receipt Date: 20240304
  Transmission Date: 20240410
  Serious: No
  Sender: FDA-Public Use
  Company Number: US-PFIZER INC-PV202300161215

PATIENT
  Age: 62 Year
  Sex: Female

DRUGS (3)
  1. SOMAVERT [Suspect]
     Active Substance: PEGVISOMANT
     Indication: Acromegaly
     Dosage: 20 MG, 2X/WEEK (UNDER THE SKIN)
     Route: 058
     Dates: start: 20230831
  2. SOMAVERT [Suspect]
     Active Substance: PEGVISOMANT
     Indication: Gigantism
     Dosage: 25 MG, 2X/WEEK
     Route: 058
     Dates: start: 20231027
  3. CABERGOLINE [Concomitant]
     Active Substance: CABERGOLINE
     Dosage: 0.5 MG

REACTIONS (7)
  - Drug ineffective [Not Recovered/Not Resolved]
  - Off label use [Unknown]
  - Product dose omission issue [Unknown]
  - Gastrointestinal disorder [Not Recovered/Not Resolved]
  - Injection site reaction [Not Recovered/Not Resolved]
  - Insulin-like growth factor abnormal [Not Recovered/Not Resolved]
  - Growth accelerated [Not Recovered/Not Resolved]

NARRATIVE: CASE EVENT DATE: 20230101
